FAERS Safety Report 8027628-4 (Version None)
Quarter: 2011Q4

REPORT INFORMATION
  Report Type: 
  Country: None (occurrence: None)
  Receive Date: 20111130
  Receipt Date: 20110815
  Transmission Date: 20120403
  Serious: Yes (Other)
  Sender: FDA-Public Use
  Company Number: US201002004005

PATIENT
  Age: 62 Year
  Sex: Female
  Weight: 111.6 kg

DRUGS (7)
  1. DIAZEPAM [Concomitant]
  2. ALPRAZOLAM [Concomitant]
  3. EXANATIDE UNK STRENGHT PEN, DISPOSABLE DEVICE (EXANATIDE UNK STRENGHT [Concomitant]
  4. AMBIEN [Concomitant]
  5. TYLENOL /00020001/ (PARACETAMOL) [Concomitant]
  6. BYETTA [Suspect]
     Dates: start: 20080901, end: 20090325
  7. ATENONOL (ATENONOL) [Concomitant]

REACTIONS (6)
  - GASTROINTESTINAL DISORDER [None]
  - PANCREATITIS [None]
  - BACK PAIN [None]
  - VOMITING [None]
  - DIARRHOEA [None]
  - NAUSEA [None]
